FAERS Safety Report 9231142 (Version 2)
Quarter: 2013Q2

REPORT INFORMATION
  Report Type: Spontaneous
  Country: US (occurrence: US)
  Receive Date: 20130415
  Receipt Date: 20130507
  Transmission Date: 20140414
  Serious: Yes (Death, Other)
  Sender: FDA-Public Use
  Company Number: PHHY2013US036218

PATIENT
  Age: 62 Year
  Sex: Female

DRUGS (2)
  1. PACLITAXEL [Suspect]
     Indication: LUNG ADENOCARCINOMA
     Dosage: 175 MG/M2, 03 WEEK INTERVAL FOR A TOTAL OF 6 CYCLES
  2. CARBOPLATIN [Suspect]
     Indication: LUNG ADENOCARCINOMA

REACTIONS (3)
  - Malignant neoplasm progression [Fatal]
  - Colon adenoma [Unknown]
  - Large intestine polyp [Unknown]
